FAERS Safety Report 8620903-1 (Version None)
Quarter: 2012Q3

REPORT INFORMATION
  Report Type: 
  Country: None (occurrence: None)
  Receive Date: 20120824
  Receipt Date: 20120815
  Transmission Date: 20120928
  Serious: Yes (Other)
  Sender: FDA-Public Use
  Company Number: CHPA2012US018290

PATIENT
  Age: 76 Year
  Sex: Female

DRUGS (3)
  1. PHENYLEPHRINE HCL [Suspect]
     Indication: NASAL CONGESTION
     Dosage: UNK, EVERYNIGHT AS NEEDED
     Route: 045
     Dates: start: 19920101
  2. DRUG THERAPY NOS [Suspect]
     Dosage: UNK, UNK
  3. MORPHINE [Suspect]
     Dosage: UNK, UNK

REACTIONS (8)
  - HYPOKINESIA [None]
  - HALLUCINATION, VISUAL [None]
  - HEADACHE [None]
  - PAIN IN EXTREMITY [None]
  - CEREBROVASCULAR ACCIDENT [None]
  - HEMIPARESIS [None]
  - PERIARTHRITIS [None]
  - HYPERTENSION [None]
